FAERS Safety Report 8360845 (Version 3)
Quarter: 2013Q1

REPORT INFORMATION
  Report Type: Report from Study
  Country: US (occurrence: US)
  Receive Date: 20120128
  Receipt Date: 20130201
  Transmission Date: 20140127
  Serious: Yes (Other)
  Sender: FDA-Public Use
  Company Number: US-ABBOTT-11P-163-0849323-00

PATIENT
  Age: 50 Year
  Sex: Male
  Weight: 99.88 kg

DRUGS (9)
  1. HUMIRA 40 MG/0.8 ML PEN [Suspect]
     Indication: CROHN^S DISEASE
  2. CYMBALTA [Concomitant]
     Indication: PRODUCT USED FOR UNKNOWN INDICATION
     Dosage: 90MG IN AM AND 30MG IN EVENING
  3. GABAPENTIN [Concomitant]
     Indication: PRODUCT USED FOR UNKNOWN INDICATION
     Dosage: 2 TABS IN AM AND 3 TABS IN EVENING
  4. UNKNOWN MEDICATION [Concomitant]
     Indication: PRODUCT USED FOR UNKNOWN INDICATION
     Dosage: PAIN PUMP
  5. KLONOPIN [Concomitant]
     Indication: POST-TRAUMATIC STRESS DISORDER
  6. AMITRIPTYLINE [Concomitant]
     Indication: INSOMNIA
     Dosage: 50 MG AT NIGHT
  7. MELOXICAM [Concomitant]
     Indication: ARTHRITIS
  8. UNNAMED MEDICATION [Concomitant]
     Indication: DEPRESSION
  9. UNNAMED MEDICATION [Concomitant]
     Indication: ANXIETY

REACTIONS (9)
  - Chondropathy [Unknown]
  - Crohn^s disease [Recovering/Resolving]
  - Crohn^s disease [Recovering/Resolving]
  - Abdominal distension [Recovering/Resolving]
  - Abdominal pain [Recovering/Resolving]
  - Diarrhoea [Recovering/Resolving]
  - Stress [Recovering/Resolving]
  - Crohn^s disease [Not Recovered/Not Resolved]
  - Activities of daily living impaired [Not Recovered/Not Resolved]
